FAERS Safety Report 9018590 (Version 1)
Quarter: 2013Q1

REPORT INFORMATION
  Report Type: Spontaneous
  Country: JP (occurrence: JP)
  Receive Date: 20130118
  Receipt Date: 20130118
  Transmission Date: 20140127
  Serious: Yes (Other)
  Sender: FDA-Public Use
  Company Number: JP-PFIZER INC-2013020837

PATIENT
  Age: 60 Year
  Sex: Female

DRUGS (2)
  1. NORVASC [Suspect]
     Route: 048
  2. DIOVAN ^NOVARTIS^ [Suspect]
     Route: 048

REACTIONS (1)
  - Postmenopausal haemorrhage [Unknown]
